FAERS Safety Report 14795293 (Version 6)
Quarter: 2019Q4

REPORT INFORMATION
  Report Type: Spontaneous
  Country: US (occurrence: US)
  Receive Date: 20180423
  Receipt Date: 20191202
  Transmission Date: 20200122
  Serious: No
  Sender: FDA-Public Use
  Company Number: US-ACTELION-A-US2018-171006

PATIENT
  Age: 74 Year
  Sex: Female

DRUGS (1)
  1. OPSUMIT [Suspect]
     Active Substance: MACITENTAN
     Indication: PULMONARY ARTERIAL HYPERTENSION
     Dosage: 10 MG, QD
     Route: 048
     Dates: start: 20170614

REACTIONS (6)
  - Malaise [Unknown]
  - Product dose omission [Unknown]
  - Ageusia [Unknown]
  - Visual impairment [Unknown]
  - Dementia [Unknown]
  - Insomnia [Unknown]

NARRATIVE: CASE EVENT DATE: 20190820
